FAERS Safety Report 21295670 (Version 3)
Quarter: 2022Q4

REPORT INFORMATION
  Report Type: Spontaneous
  Country: US (occurrence: US)
  Receive Date: 20220906
  Receipt Date: 20221011
  Transmission Date: 20230113
  Serious: No
  Sender: FDA-Public Use
  Company Number: US-NOVARTISTESTPH-NVSC2022US199329

PATIENT
  Sex: Female

DRUGS (2)
  1. MEKINIST [Suspect]
     Active Substance: TRAMETINIB DIMETHYL SULFOXIDE
     Indication: Endometrial cancer metastatic
     Dosage: 2 MG, QD
     Route: 048
     Dates: start: 20220520
  2. MEKINIST [Suspect]
     Active Substance: TRAMETINIB DIMETHYL SULFOXIDE
     Dosage: 1.5 MG, QD
     Route: 065

REACTIONS (6)
  - Rash [Unknown]
  - Rash macular [Unknown]
  - Rash pruritic [Unknown]
  - Peripheral swelling [Unknown]
  - Dyspnoea [Unknown]
  - Off label use [Unknown]
